FAERS Safety Report 9059618 (Version 1)
Quarter: 2013Q1

REPORT INFORMATION
  Report Type: Spontaneous
  Country: US (occurrence: US)
  Receive Date: 20130212
  Receipt Date: 20130212
  Transmission Date: 20140127
  Serious: Yes (Other)
  Sender: FDA-Public Use
  Company Number: US-JNJCP-30000146155

PATIENT
  Sex: Male

DRUGS (3)
  1. CLEAN + CLEAR ESSENTIALS DUAL ACTION MOISTURIZER [Suspect]
     Indication: DRY SKIN PROPHYLAXIS
     Route: 061
  2. NO DRUG NAME [Concomitant]
  3. NO DRUG NAME [Concomitant]

REACTIONS (1)
  - Asthma [Unknown]
